FAERS Safety Report 9635092 (Version 8)
Quarter: 2014Q2

REPORT INFORMATION
  Report Type: Report from Study
  Country: US (occurrence: US)
  Receive Date: 20131021
  Receipt Date: 20140604
  Transmission Date: 20141212
  Serious: Yes (Hospitalization)
  Sender: FDA-Public Use
  Company Number: US-ACTELION-A-NJ2013-89015

PATIENT
  Age: 83 Year
  Sex: Female

DRUGS (1)
  1. TRACLEER [Suspect]
     Indication: PULMONARY ARTERIAL HYPERTENSION
     Dosage: UNK
     Route: 048

REACTIONS (12)
  - Coma [Unknown]
  - Skin ulcer [Unknown]
  - Limb operation [Unknown]
  - Post procedural complication [Unknown]
  - Cerebrovascular accident [Unknown]
  - Localised infection [Unknown]
  - Nodule [Unknown]
  - Pruritus [Unknown]
  - Cellulitis [Unknown]
  - Rash pruritic [Unknown]
  - Cough [Unknown]
  - Dry mouth [Unknown]
